FAERS Safety Report 5051876-9 (Version None)
Quarter: 2006Q3

REPORT INFORMATION
  Report Type: 
  Country: None (occurrence: None)
  Receive Date: 20060713
  Receipt Date: 20060713
  Transmission Date: 20061208
  Serious: Yes (Life-Threatening, Hospitalization)
  Sender: FDA-Public Use
  Company Number: None

PATIENT
  Age: 56 Year
  Sex: Female
  Weight: 65.1 kg

DRUGS (1)
  1. ERBITUX [Suspect]
     Indication: LUNG NEOPLASM MALIGNANT
     Dosage: 430 MG IV X 1 (DOSED 250MG/M2)
     Route: 042
     Dates: start: 20060711

REACTIONS (9)
  - BRADYCARDIA [None]
  - CARDIAC ARREST [None]
  - CARDIAC DISORDER [None]
  - CARDIOMYOPATHY [None]
  - DYSPNOEA [None]
  - HYPERHIDROSIS [None]
  - HYPOTENSION [None]
  - INFUSION RELATED REACTION [None]
  - VENTRICULAR FIBRILLATION [None]
